FAERS Safety Report 8767076 (Version 1)
Quarter: 2012Q4

REPORT INFORMATION
  Report Type: Report from Study
  Country: US (occurrence: US)
  Receive Date: 20120904
  Receipt Date: 20120904
  Transmission Date: 20130627
  Serious: Yes (Hospitalization)
  Sender: FDA-Public Use
  Company Number: US-CELGENEUS-163-21660-12080649

PATIENT
  Age: 69 Year
  Sex: Male
  Weight: 80.79 kg

DRUGS (19)
  1. ABRAXANE [Suspect]
     Indication: PANCREATIC CANCER
     Dosage: 125 milligram/sq. meter
     Route: 065
     Dates: start: 20120523
  2. ABRAXANE [Suspect]
     Dosage: 125 milligram/sq. meter
     Route: 065
     Dates: start: 20120720, end: 20120727
  3. POTASSIUM CHLORIDE [Concomitant]
     Indication: HYPOKALEMIA
     Route: 065
     Dates: start: 20120803, end: 20120809
  4. HYDROCHLOROTHIAZIDE [Concomitant]
     Indication: HYPERTENSION
     Route: 065
     Dates: start: 2010
  5. METOPROLOL [Concomitant]
     Indication: HYPERTENSION
     Route: 065
     Dates: start: 2010
  6. NORVASC [Concomitant]
     Indication: HYPERTENSION
     Route: 065
     Dates: start: 2009, end: 20120813
  7. FLOMAX [Concomitant]
     Indication: BPH
     Route: 065
     Dates: start: 2010, end: 20120813
  8. PERCOCET [Concomitant]
     Indication: ABDOMINAL PAIN
     Route: 065
     Dates: start: 20120320
  9. LIPITOR [Concomitant]
     Indication: HYPERLIPIDEMIA
     Route: 065
     Dates: start: 2001
  10. ZOFRAN [Concomitant]
     Indication: NAUSEA PROPHYLAXIS
     Route: 065
     Dates: start: 20120523
  11. DEXAMETHASONE [Concomitant]
     Indication: NAUSEA PROPHYLAXIS
     Route: 065
     Dates: start: 20120523
  12. PROCHLORPERAZINE [Concomitant]
     Indication: NAUSEA
     Route: 065
     Dates: start: 20120517
  13. BACTRIM [Concomitant]
     Indication: INFECTION PROPHYLAXIS
     Route: 065
     Dates: start: 20120701, end: 20120813
  14. NEUPOGEN [Concomitant]
     Indication: PROPHYLAXIS
     Route: 065
     Dates: start: 20120718, end: 20120718
  15. NEUPOGEN [Concomitant]
     Route: 065
     Dates: start: 20120723, end: 20120723
  16. NEUPOGEN [Concomitant]
     Route: 065
     Dates: start: 20120730, end: 20120730
  17. TRAZODONE [Concomitant]
     Indication: INSOMNIA
     Route: 065
     Dates: start: 20120620
  18. CIPROFLOXACIN [Concomitant]
     Indication: SEPSIS
     Route: 065
     Dates: start: 20120802, end: 20120803
  19. CIPROFLOXACIN [Concomitant]
     Route: 065
     Dates: start: 20120802, end: 20120803

REACTIONS (1)
  - Sepsis [Recovered/Resolved]
